FAERS Safety Report 4283313-6 (Version None)
Quarter: 2004Q1

REPORT INFORMATION
  Report Type: 
  Country: None (occurrence: None)
  Receive Date: 20040129
  Receipt Date: 20040112
  Transmission Date: 20041129
  Serious: Yes (Hospitalization)
  Sender: FDA-Public Use
  Company Number: 2004UW00815

PATIENT
  Age: 32 Year
  Sex: Male

DRUGS (4)
  1. SEROQUEL [Suspect]
     Indication: SCHIZOAFFECTIVE DISORDER
  2. SEROQUEL [Suspect]
     Indication: SCHIZOPHRENIA
  3. SEROQUEL [Concomitant]
  4. RISPERDAL [Concomitant]

REACTIONS (7)
  - ABNORMAL BEHAVIOUR [None]
  - DRUG INTOLERANCE [None]
  - INSOMNIA [None]
  - NERVOUSNESS [None]
  - PARANOIA [None]
  - SOMNOLENCE [None]
  - STRESS SYMPTOMS [None]
